FAERS Safety Report 12303491 (Version 3)
Quarter: 2022Q2

REPORT INFORMATION
  Report Type: Spontaneous
  Country: US (occurrence: US)
  Receive Date: 20160426
  Receipt Date: 20220602
  Transmission Date: 20220721
  Serious: No
  Sender: FDA-Public Use
  Company Number: US-JNJFOC-20160412684

PATIENT
  Sex: Male

DRUGS (3)
  1. RISPERDAL [Suspect]
     Active Substance: RISPERIDONE
     Indication: Aggression
     Dosage: VARYING DOSE OF 0.25 MG TWICE DAILY AND 0.5 MG
     Route: 048
     Dates: start: 20030701, end: 20030822
  2. RISPERDAL [Suspect]
     Active Substance: RISPERIDONE
     Indication: Affective disorder
  3. RISPERDAL [Suspect]
     Active Substance: RISPERIDONE
     Indication: Sleep disorder

REACTIONS (4)
  - Emotional disorder [Unknown]
  - Gynaecomastia [Unknown]
  - Weight increased [Unknown]
  - Gait disturbance [Unknown]
